FAERS Safety Report 25417112 (Version 1)
Quarter: 2025Q2

REPORT INFORMATION
  Report Type: Spontaneous
  Country: CA (occurrence: CA)
  Receive Date: 20250610
  Receipt Date: 20250610
  Transmission Date: 20250717
  Serious: Yes (Hospitalization)
  Sender: MYLAN
  Company Number: CA-MYLANLABS-2025M1047398

PATIENT
  Age: 68 Year
  Sex: Female

DRUGS (4)
  1. PREGABALIN [Suspect]
     Active Substance: PREGABALIN
     Indication: Cough
     Dosage: 75 MILLIGRAM, BID (2 EVERY 1 DAYS)
  2. PREGABALIN [Suspect]
     Active Substance: PREGABALIN
     Dosage: 75 MILLIGRAM, BID (2 EVERY 1 DAYS)
     Route: 048
  3. PREGABALIN [Suspect]
     Active Substance: PREGABALIN
     Dosage: 75 MILLIGRAM, BID (2 EVERY 1 DAYS)
     Route: 048
  4. PREGABALIN [Suspect]
     Active Substance: PREGABALIN
     Dosage: 75 MILLIGRAM, BID (2 EVERY 1 DAYS)

REACTIONS (2)
  - Superficial vein thrombosis [Recovered/Resolved]
  - Off label use [Unknown]
